FAERS Safety Report 7834157-7 (Version None)
Quarter: 2011Q4

REPORT INFORMATION
  Report Type: 
  Country: None (occurrence: None)
  Receive Date: 20111024
  Receipt Date: 20111013
  Transmission Date: 20120403
  Serious: Yes (Hospitalization, Other)
  Sender: FDA-Public Use
  Company Number: PHEH2009US04183

PATIENT
  Sex: Female

DRUGS (50)
  1. ZOMETA [Suspect]
  2. TYLOX [Concomitant]
  3. MAVIK [Concomitant]
  4. PHENERGAN [Concomitant]
  5. OXYCONTIN [Concomitant]
  6. NOLVADEX [Concomitant]
  7. MORPHINE [Concomitant]
     Dosage: 25 MG/ML, UNK
     Route: 037
  8. DEPO-MEDROL [Concomitant]
  9. LORTAB [Concomitant]
     Dosage: 10 MG, PRN
     Route: 048
  10. TRICOR [Concomitant]
  11. LASIX [Concomitant]
  12. REGLAN [Concomitant]
  13. HYDROCODONE BITARTRATE [Concomitant]
  14. AROMASIN [Concomitant]
     Indication: BREAST CANCER
  15. TAMOXIFEN CITRATE [Concomitant]
  16. AREDIA [Suspect]
     Indication: OSTEOPOROSIS
     Dates: start: 20000417, end: 20060915
  17. ZOLOFT [Concomitant]
  18. FOSAMAX [Suspect]
     Indication: OSTEOPOROSIS
  19. FOSAMAX [Suspect]
     Indication: OSTEITIS DEFORMANS
  20. AMARYL [Concomitant]
  21. STEROIDS NOS [Concomitant]
  22. LIDOCAINE [Concomitant]
  23. BEXTRA [Concomitant]
     Dosage: 10 MG, BID
     Route: 048
  24. PERCOCET [Concomitant]
  25. SINGULAIR [Concomitant]
     Dosage: 10 MG, QHS
     Route: 048
  26. DOCUSATE [Concomitant]
     Dosage: 100 MG, QD
     Route: 048
  27. CIPRO [Concomitant]
     Dosage: 500 MG, BID
     Route: 048
  28. NPH INSULIN [Concomitant]
     Dosage: 20 U, QD
     Route: 058
  29. ZESTRIL [Concomitant]
     Dosage: 10 MG, QD
     Route: 048
  30. AREDIA [Suspect]
     Indication: METASTASES TO BONE
  31. SYNTHROID [Concomitant]
  32. LOMOTIL [Concomitant]
  33. CEFAZOLIN [Concomitant]
  34. MECLIZINE [Concomitant]
     Dosage: 25 MG, TID
     Route: 048
  35. MYCOSTATIN [Concomitant]
     Dosage: UNK
     Route: 061
  36. AREDIA [Suspect]
     Indication: OSTEITIS DEFORMANS
  37. AMBIEN [Concomitant]
  38. NPH INSULIN [Concomitant]
     Dosage: 15 U, QHS
     Route: 058
  39. XANAX [Concomitant]
  40. FLEXERIL [Concomitant]
  41. POTASSIUM CHLORIDE [Concomitant]
     Dosage: UNK
  42. ARIMIDEX [Concomitant]
  43. ZYPREXA [Concomitant]
  44. FENTANYL [Concomitant]
  45. RESTORIL [Concomitant]
     Dosage: 7.5 MG, DAILY
  46. INSULIN [Concomitant]
  47. ZANTAC [Concomitant]
  48. HUMULIN R [Concomitant]
     Dosage: 15 U, QHS
     Route: 058
  49. LOVENOX [Concomitant]
     Dosage: 40 MG, QD
     Route: 058
  50. ABILIFY [Concomitant]

REACTIONS (66)
  - JAW DISORDER [None]
  - PAIN [None]
  - ANXIETY [None]
  - CHOLELITHIASIS [None]
  - OSTEOMYELITIS [None]
  - FIBULA FRACTURE [None]
  - CATARACT [None]
  - CHRONIC SINUSITIS [None]
  - SKIN ULCER [None]
  - OPEN ANGLE GLAUCOMA [None]
  - CONDITION AGGRAVATED [None]
  - LACERATION [None]
  - CYCLOTHYMIC DISORDER [None]
  - DYSTHYMIC DISORDER [None]
  - ANHEDONIA [None]
  - NECK PAIN [None]
  - ABDOMINAL PAIN [None]
  - METASTASES TO SPINE [None]
  - MOOD ALTERED [None]
  - DRUG DEPENDENCE [None]
  - OSTEOARTHRITIS [None]
  - ADRENAL MASS [None]
  - BACK PAIN [None]
  - OEDEMA PERIPHERAL [None]
  - FOOT FRACTURE [None]
  - MALAISE [None]
  - INSOMNIA [None]
  - DEEP VEIN THROMBOSIS [None]
  - DIABETIC RETINOPATHY [None]
  - HAEMATURIA [None]
  - GROIN PAIN [None]
  - HAEMATOMA [None]
  - EYELID PTOSIS [None]
  - HALLUCINATION [None]
  - OSTEONECROSIS OF JAW [None]
  - EMOTIONAL DISTRESS [None]
  - TOOTH LOSS [None]
  - KYPHOSCOLIOSIS [None]
  - PERIPHERAL VASCULAR DISORDER [None]
  - CELLULITIS [None]
  - DIZZINESS [None]
  - MACULAR DEGENERATION [None]
  - ANKLE FRACTURE [None]
  - RHINITIS ALLERGIC [None]
  - CONTUSION [None]
  - ARTERIOSCLEROSIS [None]
  - RETINOPATHY HYPERTENSIVE [None]
  - CONFUSIONAL STATE [None]
  - INJURY [None]
  - BONE SWELLING [None]
  - PAIN IN EXTREMITY [None]
  - DEPRESSION [None]
  - CEREBRAL ATROPHY [None]
  - INFECTION [None]
  - ERYTHEMA [None]
  - STASIS DERMATITIS [None]
  - INTERVERTEBRAL DISC PROTRUSION [None]
  - ASTHENIA [None]
  - DYSLIPIDAEMIA [None]
  - NEPHROLITHIASIS [None]
  - ADRENAL ADENOMA [None]
  - VERTIGO [None]
  - FALL [None]
  - SKELETAL INJURY [None]
  - LACK OF SPONTANEOUS SPEECH [None]
  - MIGRAINE [None]
